FAERS Safety Report 10709544 (Version 1)
Quarter: 2015Q1

REPORT INFORMATION
  Report Type: Spontaneous
  Country: US (occurrence: None)
  Receive Date: 20150113
  Receipt Date: 20150113
  Transmission Date: 20150721
  Serious: No
  Sender: FDA-Public Use
  Company Number: None

PATIENT
  Sex: Female

DRUGS (1)
  1. LISINOPRIL AND HYDROCHLOROTHIAZIDE [Suspect]
     Active Substance: HYDROCHLOROTHIAZIDE\LISINOPRIL
     Indication: BLOOD PRESSURE
     Dosage: 20-25 META, 2 PILLS, DR LEO PARNES, MORNING AND EVENING, BY MOUTH
     Route: 048
     Dates: start: 20120227, end: 20131126

REACTIONS (4)
  - Food intolerance [None]
  - Feeling abnormal [None]
  - Skin discolouration [None]
  - Unevaluable event [None]
